FAERS Safety Report 6312895-5 (Version None)
Quarter: 2009Q3

REPORT INFORMATION
  Report Type: 
  Country: None (occurrence: None)
  Receive Date: 20090818
  Receipt Date: 20090811
  Transmission Date: 20100115
  Serious: Yes (Hospitalization, Other)
  Sender: FDA-Public Use
  Company Number: GB-JNJFOC-20090803835

PATIENT
  Age: 51 Year
  Sex: Female
  Weight: 102.96 kg

DRUGS (13)
  1. RISPERIDONE [Suspect]
     Indication: SCHIZOAFFECTIVE DISORDER
     Route: 048
  2. IBUPROFEN [Suspect]
     Route: 048
  3. IBUPROFEN [Suspect]
     Indication: PAIN
     Route: 048
  4. AMITRIPTYLINE HYDROCHLORIDE [Suspect]
     Indication: DEPRESSION
     Route: 048
  5. FUROSEMIDE [Suspect]
     Indication: JOINT SWELLING
     Route: 048
  6. LANSOPRAZOLE [Concomitant]
     Route: 065
  7. DIHYDROCODEINE BITARTRATE INJ [Concomitant]
     Route: 065
  8. FYBOGEL [Concomitant]
     Route: 065
  9. LACTULOSE [Concomitant]
     Route: 065
  10. EICOSAPENTAENOIC ACID [Concomitant]
     Route: 065
  11. NULYTELY [Concomitant]
     Route: 065
  12. PARACETAMOL [Concomitant]
     Route: 065
  13. VALPROATE SODIUM [Concomitant]
     Route: 065

REACTIONS (3)
  - BLOOD OSMOLARITY DECREASED [None]
  - BURNING SENSATION [None]
  - HYPONATRAEMIA [None]
